FAERS Safety Report 26075506 (Version 1)
Quarter: 2025Q4

REPORT INFORMATION
  Report Type: Spontaneous
  Country: GB (occurrence: GB)
  Receive Date: 20251121
  Receipt Date: 20251121
  Transmission Date: 20260118
  Serious: Yes (Disabling)
  Sender: MYLAN
  Company Number: None

PATIENT
  Sex: Male

DRUGS (12)
  1. LIPITOR [Suspect]
     Active Substance: ATORVASTATIN CALCIUM
     Indication: Product used for unknown indication
     Dosage: 20 MILLIGRAM, QD (DAILY)
     Dates: start: 20251028
  2. LIPITOR [Suspect]
     Active Substance: ATORVASTATIN CALCIUM
     Dosage: 20 MILLIGRAM, QD (DAILY)
     Route: 065
     Dates: start: 20251028
  3. LIPITOR [Suspect]
     Active Substance: ATORVASTATIN CALCIUM
     Dosage: 20 MILLIGRAM, QD (DAILY)
     Route: 065
     Dates: start: 20251028
  4. LIPITOR [Suspect]
     Active Substance: ATORVASTATIN CALCIUM
     Dosage: 20 MILLIGRAM, QD (DAILY)
     Dates: start: 20251028
  5. LOSARTAN [Concomitant]
     Active Substance: LOSARTAN
     Indication: Product used for unknown indication
     Dosage: UNK (HAS BEEN TAKING LONG TERM)
  6. LOSARTAN [Concomitant]
     Active Substance: LOSARTAN
     Dosage: UNK (HAS BEEN TAKING LONG TERM)
     Route: 065
  7. LOSARTAN [Concomitant]
     Active Substance: LOSARTAN
     Dosage: UNK (HAS BEEN TAKING LONG TERM)
     Route: 065
  8. LOSARTAN [Concomitant]
     Active Substance: LOSARTAN
     Dosage: UNK (HAS BEEN TAKING LONG TERM)
  9. FELODIPINE [Concomitant]
     Active Substance: FELODIPINE
     Indication: Product used for unknown indication
     Dosage: UNK (HAS BEEN TAKING FOR LONG TIME)
  10. FELODIPINE [Concomitant]
     Active Substance: FELODIPINE
     Dosage: UNK (HAS BEEN TAKING FOR LONG TIME)
     Route: 065
  11. FELODIPINE [Concomitant]
     Active Substance: FELODIPINE
     Dosage: UNK (HAS BEEN TAKING FOR LONG TIME)
     Route: 065
  12. FELODIPINE [Concomitant]
     Active Substance: FELODIPINE
     Dosage: UNK (HAS BEEN TAKING FOR LONG TIME)

REACTIONS (1)
  - Vomiting [Not Recovered/Not Resolved]

NARRATIVE: CASE EVENT DATE: 20251030
